FAERS Safety Report 18103881 (Version 1)
Quarter: 2020Q3

REPORT INFORMATION
  Report Type: Spontaneous
  Country: US (occurrence: US)
  Receive Date: 20200731
  Receipt Date: 20200731
  Transmission Date: 20201103
  Serious: Yes (Other)
  Sender: FDA-Public Use
  Company Number: None

PATIENT
  Age: 59 Year
  Sex: Male

DRUGS (1)
  1. EVENITY [Suspect]
     Active Substance: ROMOSOZUMAB-AQQG
     Indication: OSTEOPOROSIS
     Route: 058
     Dates: start: 20200714, end: 20200731

REACTIONS (7)
  - Feeling abnormal [None]
  - Paraesthesia [None]
  - Injection site pain [None]
  - Memory impairment [None]
  - Chest discomfort [None]
  - Emotional poverty [None]
  - Mobility decreased [None]

NARRATIVE: CASE EVENT DATE: 20200714
